FAERS Safety Report 10015722 (Version 1)
Quarter: 2014Q1

REPORT INFORMATION
  Report Type: Spontaneous
  Country: US (occurrence: US)
  Receive Date: 20140317
  Receipt Date: 20140317
  Transmission Date: 20141002
  Serious: Yes (Other)
  Sender: FDA-Public Use
  Company Number: US-PFIZER INC-2014073763

PATIENT
  Age: 31 Year
  Sex: Male
  Weight: 92.97 kg

DRUGS (2)
  1. VENLAFAXINE ER [Suspect]
     Indication: DEPRESSION
     Dosage: 150 MG, 1X/DAY
     Route: 048
  2. VALIUM [Concomitant]
     Dosage: 2 MG, 2X/DAY

REACTIONS (6)
  - Weight decreased [Unknown]
  - Feeling abnormal [Unknown]
  - Hyperhidrosis [Unknown]
  - Heart rate increased [Unknown]
  - Fatigue [Unknown]
  - Insomnia [Unknown]
